FAERS Safety Report 6581348-1 (Version None)
Quarter: 2010Q1

REPORT INFORMATION
  Report Type: 
  Country: None (occurrence: None)
  Receive Date: 20100215
  Receipt Date: 20100202
  Transmission Date: 20100710
  Serious: Yes (Hospitalization)
  Sender: FDA-Public Use
  Company Number: US-JNJFOC-20100106297

PATIENT
  Age: 70 Year
  Sex: Female
  Weight: 79.38 kg

DRUGS (2)
  1. TYLENOL ARTHRITIS PAIN ER [Suspect]
  2. TYLENOL ARTHRITIS PAIN ER [Suspect]
     Indication: ARTHRALGIA

REACTIONS (3)
  - PRODUCT QUALITY ISSUE [None]
  - SILENT MYOCARDIAL INFARCTION [None]
  - SKIN ODOUR ABNORMAL [None]
